FAERS Safety Report 16082519 (Version 1)
Quarter: 2019Q1

REPORT INFORMATION
  Report Type: Spontaneous
  Country: US (occurrence: US)
  Receive Date: 20190318
  Receipt Date: 20190318
  Transmission Date: 20190418
  Serious: Yes (Other)
  Sender: FDA-Public Use
  Company Number: US-SA-2018SA002878

PATIENT
  Age: 54 Year
  Sex: Female
  Weight: 34.4 kg

DRUGS (8)
  1. AMBIEN [Concomitant]
     Active Substance: ZOLPIDEM TARTRATE
     Dosage: UNK UNK, UNK
     Route: 065
     Dates: start: 20010201
  2. TAXOTERE [Suspect]
     Active Substance: DOCETAXEL
     Indication: BREAST CANCER FEMALE
     Dosage: 75 MG/M2, QW
     Route: 042
     Dates: start: 20131024, end: 20131024
  3. DOXEPIN [Concomitant]
     Active Substance: DOXEPIN
     Dosage: UNK UNK, UNK
     Route: 065
     Dates: start: 20010101
  4. TAXOTERE [Suspect]
     Active Substance: DOCETAXEL
     Dosage: 75 MG/M2, QW
     Route: 042
     Dates: start: 20140509, end: 20140509
  5. HERCEPTIN [Concomitant]
     Active Substance: TRASTUZUMAB
     Indication: ALOPECIA
     Dosage: 4MG/KGD1, 2 MG/KG WKLY Q21DX
     Route: 065
  6. HERCEPTIN [Concomitant]
     Active Substance: TRASTUZUMAB
     Dosage: 6 MG /KG Q 21 X11
     Route: 065
  7. PARAPLATIN [Concomitant]
     Active Substance: CARBOPLATIN
     Dosage: UNK UNK, UNK
     Route: 065
  8. ASPIRIN [ACETYLSALICYLIC ACID] [Concomitant]
     Active Substance: ASPIRIN
     Dosage: UNK UNK, UNK
     Route: 065

REACTIONS (6)
  - Pain [Unknown]
  - Emotional distress [Unknown]
  - Alopecia [Recovering/Resolving]
  - Psychological trauma [Unknown]
  - Impaired quality of life [Unknown]
  - Anxiety [Unknown]

NARRATIVE: CASE EVENT DATE: 20141009
